FAERS Safety Report 5588511-7 (Version None)
Quarter: 2008Q1

REPORT INFORMATION
  Report Type: 
  Country: None (occurrence: None)
  Receive Date: 20080111
  Receipt Date: 20071226
  Transmission Date: 20080703
  Serious: Yes (Other)
  Sender: FDA-Public Use
  Company Number: FR-GILEAD-2008-0014759

PATIENT
  Sex: Female
  Weight: 67 kg

DRUGS (2)
  1. VIREAD [Suspect]
     Indication: WRONG DRUG ADMINISTERED
     Route: 048
     Dates: start: 20071213, end: 20071226
  2. COMBIVIR [Concomitant]
     Indication: HIV INFECTION

REACTIONS (4)
  - DIZZINESS [None]
  - DRUG PRESCRIBING ERROR [None]
  - OVERDOSE [None]
  - PREGNANCY [None]
